FAERS Safety Report 5170228-4 (Version None)
Quarter: 2006Q4

REPORT INFORMATION
  Report Type: 
  Country: None (occurrence: None)
  Receive Date: 20061204
  Receipt Date: 20061128
  Transmission Date: 20070319
  Serious: Yes (Hospitalization)
  Sender: FDA-Public Use
  Company Number: 2006BL006575

PATIENT
  Age: 74 Year
  Sex: Male

DRUGS (10)
  1. DEXAMETHASONE [Suspect]
     Dosage: 2 MILLIGRAMS; ONCE A DAY; ORAL
     Route: 048
     Dates: start: 20060701, end: 20061101
  2. ATENOLOL [Concomitant]
  3. ENALAPRIL MALEATE [Concomitant]
  4. FUROSEMIDE [Concomitant]
  5. ISTIN [Concomitant]
  6. LANSOPRAZOLE [Concomitant]
  7. SIMVASTATIN [Concomitant]
  8. .. [Concomitant]
  9. .. [Concomitant]
  10. .. [Concomitant]

REACTIONS (3)
  - CONFUSIONAL STATE [None]
  - PARANOIA [None]
  - PSYCHOTIC DISORDER [None]
